FAERS Safety Report 5470153-5 (Version None)
Quarter: 2007Q3

REPORT INFORMATION
  Report Type: 
  Country: None (occurrence: None)
  Receive Date: 20070924
  Receipt Date: 20070906
  Transmission Date: 20080115
  Serious: Yes (Other)
  Sender: FDA-Public Use
  Company Number: 8025989

PATIENT
  Age: 25 Year
  Sex: Female

DRUGS (4)
  1. KEPPRA [Suspect]
     Indication: EPILEPSY
     Dosage: 500 MG /D PO
     Route: 048
     Dates: start: 20061101
  2. PRENATAL VITAMINS [Concomitant]
  3. FOLIC ACID [Concomitant]
  4. CHROMAGEN [Concomitant]

REACTIONS (4)
  - ANAEMIA OF PREGNANCY [None]
  - CULTURE CERVIX POSITIVE [None]
  - DRUG EXPOSURE DURING PREGNANCY [None]
  - HERPES SIMPLEX [None]
